FAERS Safety Report 6765520-3 (Version None)
Quarter: 2010Q2

REPORT INFORMATION
  Report Type: 
  Country: None (occurrence: None)
  Receive Date: 20100611
  Receipt Date: 20100601
  Transmission Date: 20101027
  Serious: Yes (Other)
  Sender: FDA-Public Use
  Company Number: CZ-TEVA-236906ISR

PATIENT
  Age: 60 Year

DRUGS (4)
  1. DOXORUBICIN HCL [Suspect]
     Dates: start: 20070801, end: 20071201
  2. VINCRISTINE [Suspect]
     Dates: start: 20070801, end: 20071201
  3. CYCLOPHOSPHAMIDE [Suspect]
     Dates: start: 20070801, end: 20071201
  4. PREDNISONE [Suspect]
     Dates: start: 20070801, end: 20071201

REACTIONS (1)
  - HEPATITIS B [None]
